FAERS Safety Report 9184428 (Version 1)
Quarter: 2013Q1

REPORT INFORMATION
  Report Type: Report from Study
  Country: AU (occurrence: AU)
  Receive Date: 20130322
  Receipt Date: 20130322
  Transmission Date: 20140127
  Serious: Yes (Death, Other)
  Sender: FDA-Public Use
  Company Number: AU-ROCHE-1204798

PATIENT
  Age: 51 Year
  Sex: Male
  Weight: 86 kg

DRUGS (4)
  1. VEMURAFENIB [Suspect]
     Indication: METASTATIC MALIGNANT MELANOMA
     Route: 048
     Dates: start: 20121102, end: 20121227
  2. VEMURAFENIB [Suspect]
     Route: 048
     Dates: start: 20121227, end: 20130124
  3. VEMURAFENIB [Suspect]
     Route: 048
     Dates: start: 20130124, end: 20130201
  4. ASPIRIN [Concomitant]
     Indication: MYOCARDIAL ISCHAEMIA
     Route: 048

REACTIONS (6)
  - Metastases to central nervous system [Fatal]
  - Liver function test abnormal [Recovering/Resolving]
  - Headache [Unknown]
  - Confusional state [Unknown]
  - Metastases to meninges [Unknown]
  - Convulsion [Not Recovered/Not Resolved]
